FAERS Safety Report 8916167 (Version 1)
Quarter: 2012Q4

REPORT INFORMATION
  Report Type: 
  Country: CA (occurrence: CA)
  Receive Date: 20121120
  Receipt Date: 20121120
  Transmission Date: 20130627
  Serious: Yes (Other)
  Sender: FDA-Public Use
  Company Number: CA-ELI_LILLY_AND_COMPANY-CA201211003846

PATIENT
  Age: 54 Year
  Sex: Female

DRUGS (6)
  1. FORTEO [Suspect]
     Indication: OSTEOPOROSIS
     Dosage: 20 ug, qd
     Route: 058
     Dates: start: 20120821
  2. NEXIUM [Concomitant]
  3. MOTILIUM [Concomitant]
  4. CALCIUM [Concomitant]
  5. VITAMIN D NOS [Concomitant]
  6. GRAVOL [Concomitant]

REACTIONS (1)
  - Breast cancer [Not Recovered/Not Resolved]
